FAERS Safety Report 19591223 (Version 1)
Quarter: 2021Q3

REPORT INFORMATION
  Report Type: Spontaneous
  Country: SE (occurrence: SE)
  Receive Date: 20210721
  Receipt Date: 20210721
  Transmission Date: 20211014
  Serious: Yes (Hospitalization)
  Sender: FDA-Public Use
  Company Number: SE-OTSUKA-2019_039726

PATIENT
  Age: 21 Year
  Sex: Female

DRUGS (6)
  1. PROPAVAN [Suspect]
     Active Substance: PROPIOMAZINE
     Indication: PRODUCT USED FOR UNKNOWN INDICATION
     Dosage: 200 MG, SINGLE (8X25 MG)
     Route: 048
     Dates: start: 20180922, end: 20180922
  2. VENLAFAXINE [Suspect]
     Active Substance: VENLAFAXINE HYDROCHLORIDE
     Indication: PRODUCT USED FOR UNKNOWN INDICATION
     Dosage: 225 MG, SINGLE (3 X75 MG)
     Route: 048
     Dates: start: 20180922, end: 20180922
  3. ABILIFY [Suspect]
     Active Substance: ARIPIPRAZOLE
     Indication: PRODUCT USED FOR UNKNOWN INDICATION
     Dosage: 45 MG, SINGLE (3X15 MG)
     Route: 048
     Dates: start: 20180922, end: 20180922
  4. ALIMEMAZINE [Suspect]
     Active Substance: TRIMEPRAZINE
     Indication: PRODUCT USED FOR UNKNOWN INDICATION
     Dosage: 160 MG, SINGLE (8X20 MG)
     Route: 048
     Dates: start: 20180922, end: 20180922
  5. LERGIGAN (PROMETHAZINE HYDROCHLORIDE) [Suspect]
     Active Substance: PROMETHAZINE HYDROCHLORIDE
     Indication: PRODUCT USED FOR UNKNOWN INDICATION
     Dosage: 500 MG, SINGLE (20 X25 MG)
     Route: 048
     Dates: start: 20180922, end: 20180922
  6. QUETIAPINE. [Suspect]
     Active Substance: QUETIAPINE
     Indication: PRODUCT USED FOR UNKNOWN INDICATION
     Dosage: 200 MG, SINGLE (8X25 MG)
     Route: 048
     Dates: start: 20180922, end: 20180922

REACTIONS (3)
  - Intentional self-injury [Unknown]
  - Fatigue [Unknown]
  - Intentional overdose [Unknown]

NARRATIVE: CASE EVENT DATE: 20180922
